FAERS Safety Report 9741735 (Version 2)
Quarter: 2014Q2

REPORT INFORMATION
  Report Type: Spontaneous
  Country: GR (occurrence: GR)
  Receive Date: 20131210
  Receipt Date: 20140424
  Transmission Date: 20141212
  Serious: Yes (Other)
  Sender: FDA-Public Use
  Company Number: GR-BRISTOL-MYERS SQUIBB COMPANY-19868140

PATIENT
  Age: 73 Year
  Sex: Female

DRUGS (10)
  1. SPRYCEL (CML) TABS 50 MG [Suspect]
     Indication: CHRONIC MYELOID LEUKAEMIA
     Dosage: RED TO 1 TAB OF 50MG 21MAY13-3NOV13
     Route: 048
     Dates: start: 20130423, end: 20130520
  2. PLAVIX [Concomitant]
  3. ATROVENT [Concomitant]
  4. INEGY [Concomitant]
  5. FEMARA [Concomitant]
  6. FEMARA [Concomitant]
  7. LOBIVON [Concomitant]
  8. DENOSUMAB [Concomitant]
  9. VOMEX A [Concomitant]
     Indication: DIZZINESS
  10. LERCADIP [Concomitant]

REACTIONS (7)
  - Pulmonary hypertension [Recovering/Resolving]
  - Pericardial effusion [Unknown]
  - Mitral valve incompetence [Unknown]
  - Pericarditis [Unknown]
  - Pleurisy [Unknown]
  - Vomiting [Unknown]
  - Diarrhoea [Unknown]
